FAERS Safety Report 4588394-8 (Version None)
Quarter: 2005Q1

REPORT INFORMATION
  Report Type: 
  Country: None (occurrence: None)
  Receive Date: 20050215
  Receipt Date: 20050215
  Transmission Date: 20050727
  Serious: Yes (Life-Threatening, Hospitalization)
  Sender: FDA-Public Use
  Company Number: None

PATIENT
  Sex: Female

DRUGS (2)
  1. METHOTREXATE [Suspect]
     Indication: ACUTE LYMPHOCYTIC LEUKAEMIA
     Dates: start: 20040818
  2. METHOTREXATE [Suspect]
     Indication: B PRECURSOR TYPE ACUTE LEUKAEMIA
     Dates: start: 20040818

REACTIONS (6)
  - CEREBROVASCULAR ACCIDENT [None]
  - HEMIPARESIS [None]
  - INFARCTION [None]
  - NEUROTOXICITY [None]
  - STUPOR [None]
  - URINARY INCONTINENCE [None]
